FAERS Safety Report 9100778 (Version 1)
Quarter: 2013Q1

REPORT INFORMATION
  Report Type: Spontaneous
  Country: CA (occurrence: CA)
  Receive Date: 20130215
  Receipt Date: 20130215
  Transmission Date: 20140127
  Serious: Yes (Life-Threatening)
  Sender: FDA-Public Use
  Company Number: CA-TEVA-386795USA

PATIENT
  Sex: Female

DRUGS (17)
  1. TRAZODONE [Suspect]
     Dosage: 50 MILLIGRAM DAILY;
     Route: 065
  2. ACTIVANT [Concomitant]
  3. ALTACE [Concomitant]
  4. ALTACE [Concomitant]
  5. AMLODIPINE [Concomitant]
  6. AMLODIPINE [Concomitant]
  7. APO-RAMIPRIL [Concomitant]
  8. APO-RAMIPRIL [Concomitant]
  9. AVELOX [Concomitant]
  10. AVELOX [Concomitant]
  11. NORVASC [Concomitant]
  12. NORVASC [Concomitant]
  13. NOVO-RAMIPRIL [Concomitant]
  14. NOVO-RAMIPRIL [Concomitant]
  15. OXAZEPAM [Concomitant]
  16. OXAZEPAM [Concomitant]
  17. TEVA-TRAZODONE [Concomitant]

REACTIONS (4)
  - Asthenia [Not Recovered/Not Resolved]
  - Hypoaesthesia [Not Recovered/Not Resolved]
  - Otorrhoea [Not Recovered/Not Resolved]
  - Headache [Not Recovered/Not Resolved]
